FAERS Safety Report 13554929 (Version 4)
Quarter: 2017Q3

REPORT INFORMATION
  Report Type: Spontaneous
  Country: KR (occurrence: KR)
  Receive Date: 20170517
  Receipt Date: 20170804
  Transmission Date: 20171127
  Serious: Yes (Hospitalization, Other)
  Sender: FDA-Public Use
  Company Number: KR-009507513-1705KOR007349

PATIENT
  Age: 60 Year
  Sex: Male
  Weight: 64.1 kg

DRUGS (19)
  1. EMEND (FOSAPREPITANT DIMEGLUMINE) [Suspect]
     Active Substance: FOSAPREPITANT DIMEGLUMINE
     Dosage: 150 MG, ONCE
     Route: 042
     Dates: start: 20170126, end: 20170126
  2. DEXAMETHASONE SODIUM PHOSPHATE. [Concomitant]
     Active Substance: DEXAMETHASONE SODIUM PHOSPHATE
     Dosage: 12 MG, ONCE (STRENGTH: 5MG/ML)
     Route: 042
     Dates: start: 20170221, end: 20170221
  3. ALOXI [Concomitant]
     Active Substance: PALONOSETRON HYDROCHLORIDE
     Indication: PROPHYLAXIS OF NAUSEA AND VOMITING
     Dosage: 0.25 MG, ONCE
     Route: 042
     Dates: start: 20170104, end: 20170104
  4. SUVAST [Concomitant]
     Indication: HYPERLIPIDAEMIA
     Dosage: 10 MG, QD
     Route: 048
  5. CISPLATIN. [Concomitant]
     Active Substance: CISPLATIN
     Dosage: 170 MG, ONCE, CYCLE 3
     Route: 042
     Dates: start: 20170221, end: 20170221
  6. DEXAMETHASONE SODIUM PHOSPHATE. [Concomitant]
     Active Substance: DEXAMETHASONE SODIUM PHOSPHATE
     Dosage: 8 MG, ONCE (STRENGTH: 5MG/ML)
     Route: 042
     Dates: start: 20170105, end: 20170105
  7. PANTOLINE TABLETS [Concomitant]
     Dosage: 1 TABLET (20 MG), DAILY
     Route: 048
     Dates: start: 20170221, end: 20170224
  8. DEXAMETHASONE SODIUM PHOSPHATE. [Concomitant]
     Active Substance: DEXAMETHASONE SODIUM PHOSPHATE
     Indication: PROPHYLAXIS OF NAUSEA AND VOMITING
     Dosage: 12 MG, ONCE (STRENGTH: 5MG/ML)
     Route: 042
     Dates: start: 20170104, end: 20170104
  9. EMEND (FOSAPREPITANT DIMEGLUMINE) [Suspect]
     Active Substance: FOSAPREPITANT DIMEGLUMINE
     Indication: PROPHYLAXIS OF NAUSEA AND VOMITING
     Dosage: 150 MG, ONCE
     Route: 042
     Dates: start: 20170104, end: 20170104
  10. CISPLATIN. [Concomitant]
     Active Substance: CISPLATIN
     Dosage: 170 MG, ONCE, CYCLE 2
     Route: 042
     Dates: start: 20170126, end: 20170126
  11. ALOXI [Concomitant]
     Active Substance: PALONOSETRON HYDROCHLORIDE
     Dosage: 0.25 MG, ONCE
     Route: 042
     Dates: start: 20170126, end: 20170126
  12. ASPIRIN. [Concomitant]
     Active Substance: ASPIRIN
     Indication: ANGIOPLASTY
     Dosage: 1 CAPSULE (100 MG), DAILY
     Route: 048
  13. EMEND (FOSAPREPITANT DIMEGLUMINE) [Suspect]
     Active Substance: FOSAPREPITANT DIMEGLUMINE
     Dosage: 150 MG, ONCE
     Route: 042
     Dates: start: 20170221, end: 20170221
  14. CISPLATIN. [Concomitant]
     Active Substance: CISPLATIN
     Indication: CHEMOTHERAPY
     Dosage: 170 MG, ONCE, CYCLE 1
     Route: 042
     Dates: start: 20170104, end: 20170104
  15. DEXAMETHASONE SODIUM PHOSPHATE. [Concomitant]
     Active Substance: DEXAMETHASONE SODIUM PHOSPHATE
     Dosage: 12 MG, ONCE (STRENGTH: 5MG/ML)
     Route: 042
     Dates: start: 20170126, end: 20170126
  16. ALOXI [Concomitant]
     Active Substance: PALONOSETRON HYDROCHLORIDE
     Dosage: 0.25 MG, ONCE
     Route: 042
     Dates: start: 20170221, end: 20170221
  17. PANTOLINE TABLETS [Concomitant]
     Dosage: 1 TABLET (20 MG), DAILY
     Route: 048
     Dates: start: 20170126, end: 20170129
  18. PANTOLINE TABLETS [Concomitant]
     Indication: PROPHYLAXIS
     Dosage: 1 TABLET (20 MG), DAILY
     Route: 048
     Dates: start: 20170104, end: 20170107
  19. TYLENOL [Concomitant]
     Active Substance: ACETAMINOPHEN
     Indication: PAIN PROPHYLAXIS
     Dosage: 1 DF, UNK
     Route: 048
     Dates: start: 20170220, end: 20170221

REACTIONS (5)
  - Decreased appetite [Recovered/Resolved]
  - Nausea [Recovered/Resolved]
  - Decreased appetite [Recovered/Resolved]
  - Asthenia [Recovered/Resolved]
  - Acute kidney injury [Recovered/Resolved]

NARRATIVE: CASE EVENT DATE: 20170118
